FAERS Safety Report 7500230-6 (Version None)
Quarter: 2011Q2

REPORT INFORMATION
  Report Type: 
  Country: None (occurrence: None)
  Receive Date: 20110524
  Receipt Date: 20110512
  Transmission Date: 20111010
  Serious: Yes (Other)
  Sender: FDA-Public Use
  Company Number: JP-ASTRAZENECA-2011SE30708

PATIENT
  Sex: Male

DRUGS (2)
  1. MEROPENEM [Suspect]
     Indication: PNEUMONIA
     Route: 042
     Dates: start: 20110419, end: 20110501
  2. PRODIF [Concomitant]
     Dates: start: 20110430, end: 20110430

REACTIONS (1)
  - DEPRESSED LEVEL OF CONSCIOUSNESS [None]
